FAERS Safety Report 9198571 (Version 1)
Quarter: 2013Q1

REPORT INFORMATION
  Report Type: Report from Study
  Country: ES (occurrence: ES)
  Receive Date: 20130329
  Receipt Date: 20130329
  Transmission Date: 20140127
  Serious: Yes (Hospitalization)
  Sender: FDA-Public Use
  Company Number: ES-SANOFI-AVENTIS-2013SA029260

PATIENT
  Age: 66 Year
  Sex: Male
  Weight: 67 kg

DRUGS (15)
  1. DOCETAXEL [Suspect]
     Indication: SQUAMOUS CELL CARCINOMA OF HEAD AND NECK
     Route: 065
     Dates: start: 20130122, end: 20130305
  2. CISPLATIN [Suspect]
     Indication: SQUAMOUS CELL CARCINOMA OF HEAD AND NECK
     Route: 065
     Dates: start: 20130122, end: 20130305
  3. FLUOROURACIL [Suspect]
     Indication: SQUAMOUS CELL CARCINOMA OF HEAD AND NECK
     Route: 065
     Dates: start: 20130122, end: 20130305
  4. MEROPENEM [Concomitant]
     Indication: PROPHYLAXIS
     Dates: start: 20130221, end: 20130226
  5. AMOXICILLIN/CLAVULANIC ACID [Concomitant]
     Indication: PROPHYLAXIS
     Dosage: I SACHET EVERY8HOUR
     Dates: start: 20130226, end: 20130305
  6. CALCIUM-SANDOZ [Concomitant]
     Indication: HYPOCALCAEMIA
     Route: 048
     Dates: start: 20130221, end: 20130222
  7. CALCIUM GLUCONATE [Concomitant]
     Indication: HYPOCALCAEMIA
     Dates: start: 20130222, end: 20130305
  8. CALCIFEDIOL [Concomitant]
     Indication: VITAMIN D DEFICIENCY
     Dates: start: 20130225
  9. I.V. SOLUTIONS [Concomitant]
     Indication: HYPOKALAEMIA
     Dosage: DOSE:40 MILLIEQUIVALENT(S)/LITRE
     Dates: start: 20130225, end: 20130226
  10. POTASSIUM CHLORIDE [Concomitant]
     Indication: HYPOKALAEMIA
     Dosage: DOSE:40 MILLIEQUIVALENT(S)/LITRE
     Dates: start: 20130225, end: 20130226
  11. MAGNESIUM SULFATE [Concomitant]
     Indication: HYPOMAGNESAEMIA
     Dates: start: 20130226, end: 20130301
  12. SALBUTAMOL [Concomitant]
     Indication: DYSPNOEA
     Route: 055
     Dates: start: 20130221, end: 20130222
  13. IPRATROPIUM [Concomitant]
     Indication: DYSPNOEA
     Route: 055
     Dates: start: 20130221, end: 20130226
  14. SALBUTAMOL [Concomitant]
     Indication: DYSPNOEA
     Route: 055
     Dates: start: 20130304, end: 20130305
  15. IPRATROPIUM [Concomitant]
     Indication: DYSPNOEA
     Dates: start: 20130304, end: 20130305

REACTIONS (1)
  - Malnutrition [Recovered/Resolved]
